FAERS Safety Report 9842084 (Version 1)
Quarter: 2014Q1

REPORT INFORMATION
  Report Type: Spontaneous
  Country: RO (occurrence: RO)
  Receive Date: 20140124
  Receipt Date: 20140124
  Transmission Date: 20141002
  Serious: Yes (Hospitalization)
  Sender: FDA-Public Use
  Company Number: RO-BRISTOL-MYERS SQUIBB COMPANY-20040812

PATIENT
  Sex: Female

DRUGS (1)
  1. BARACLUDE TABS [Suspect]
     Dosage: 1DF:25 TABS
     Route: 048

REACTIONS (2)
  - Depression [Unknown]
  - Intentional overdose [Unknown]
